FAERS Safety Report 5604138-2 (Version None)
Quarter: 2008Q1

REPORT INFORMATION
  Report Type: 
  Country: None (occurrence: None)
  Receive Date: 20080128
  Receipt Date: 20080124
  Transmission Date: 20080703
  Serious: Yes (Life-Threatening)
  Sender: FDA-Public Use
  Company Number: PHBS2008CZ01236

PATIENT
  Age: 15 Year
  Sex: Female

DRUGS (1)
  1. LESCOL XL [Suspect]
     Dosage: 2800 MG, ONCE/SINGLE
     Route: 048

REACTIONS (2)
  - HEPATIC ENZYME INCREASED [None]
  - SUICIDE ATTEMPT [None]
